FAERS Safety Report 8531431-6 (Version None)
Quarter: 2012Q3

REPORT INFORMATION
  Report Type: 
  Country: None (occurrence: None)
  Receive Date: 20120723
  Receipt Date: 20120718
  Transmission Date: 20120928
  Serious: Yes (Hospitalization)
  Sender: FDA-Public Use
  Company Number: 2012SP001855

PATIENT
  Sex: Male

DRUGS (4)
  1. LATUDA [Suspect]
     Route: 048
     Dates: start: 20120406, end: 20120515
  2. LAMOTRIGINE [Concomitant]
     Indication: DEPRESSION
     Dates: end: 20120515
  3. LATUDA [Suspect]
     Indication: SCHIZOAFFECTIVE DISORDER
     Route: 048
     Dates: start: 20111220
  4. LATUDA [Suspect]
     Route: 048
     Dates: start: 20120102

REACTIONS (1)
  - PSYCHIATRIC DECOMPENSATION [None]
